FAERS Safety Report 9158426 (Version 1)
Quarter: 2013Q1

REPORT INFORMATION
  Report Type: Spontaneous
  Country: FR (occurrence: FR)
  Receive Date: 20130312
  Receipt Date: 20130312
  Transmission Date: 20140127
  Serious: Yes (Other)
  Sender: FDA-Public Use
  Company Number: FR-ROCHE-1201023

PATIENT
  Age: 41 Year
  Sex: Male

DRUGS (2)
  1. CELLCEPT [Suspect]
     Indication: PROPHYLAXIS AGAINST TRANSPLANT REJECTION
     Route: 048
     Dates: start: 20121205, end: 20130214
  2. ROVALCYTE [Suspect]
     Indication: PROPHYLAXIS
     Route: 048
     Dates: start: 20121205, end: 20130214

REACTIONS (1)
  - Agranulocytosis [Not Recovered/Not Resolved]
